FAERS Safety Report 19928841 (Version 1)
Quarter: 2021Q4

REPORT INFORMATION
  Report Type: Spontaneous
  Country: AU (occurrence: AU)
  Receive Date: 20211007
  Receipt Date: 20211007
  Transmission Date: 20220303
  Serious: Yes (Other)
  Sender: FDA-Public Use
  Company Number: AU-BAUSCH-BL-2021-033791

PATIENT
  Sex: Female

DRUGS (1)
  1. PLENVU [Suspect]
     Active Substance: ASCORBIC ACID\POLYETHYLENE GLYCOL 3350\POTASSIUM CHLORIDE\SODIUM ASCORBATE\SODIUM CHLORIDE\SODIUM SU
     Indication: Bowel preparation
     Route: 048
     Dates: start: 20210927

REACTIONS (4)
  - Swelling face [Unknown]
  - Eye pain [Unknown]
  - Urticaria [Unknown]
  - Vomiting [Unknown]

NARRATIVE: CASE EVENT DATE: 20210927
